FAERS Safety Report 13224600 (Version 2)
Quarter: 2018Q2

REPORT INFORMATION
  Report Type: Spontaneous
  Country: US (occurrence: US)
  Receive Date: 20170213
  Receipt Date: 20180502
  Transmission Date: 20180711
  Serious: Yes (Hospitalization, Other)
  Sender: FDA-Public Use
  Company Number: US-BRISTOL-MYERS SQUIBB COMPANY-BMS-2017-009359

PATIENT
  Age: 7 Year
  Sex: Male
  Weight: 22.3 kg

DRUGS (5)
  1. WARFARIN SODIUM. [Suspect]
     Active Substance: WARFARIN SODIUM
     Indication: PRODUCT USED FOR UNKNOWN INDICATION
     Dosage: UNK
     Route: 065
     Dates: start: 20180116
  2. ENALAPRIL [Suspect]
     Active Substance: ENALAPRIL
     Indication: CARDIAC FAILURE
     Dosage: UNK
     Route: 065
  3. WARFARIN SODIUM. [Suspect]
     Active Substance: WARFARIN SODIUM
     Indication: MITRAL VALVE REPLACEMENT
     Dosage: 4.7 MG, QD
     Route: 065
     Dates: start: 20160504, end: 20170111
  4. SACUBITRIL W/VALSARTAN [Suspect]
     Active Substance: SACUBITRIL\VALSARTAN
     Indication: LEFT VENTRICULAR DYSFUNCTION
     Dosage: 3.1 MG/KG, UNK
     Route: 048
     Dates: start: 20161207, end: 20161207
  5. SACUBITRIL W/VALSARTAN [Suspect]
     Active Substance: SACUBITRIL\VALSARTAN
     Indication: CARDIAC FAILURE
     Dosage: 0.8 MG/KG, UNK
     Route: 048
     Dates: start: 20161116, end: 20161116

REACTIONS (4)
  - Aspiration joint [Unknown]
  - Joint swelling [Unknown]
  - Juvenile idiopathic arthritis [Recovering/Resolving]
  - Haemarthrosis [Unknown]

NARRATIVE: CASE EVENT DATE: 20170111
